FAERS Safety Report 18031533 (Version 1)
Quarter: 2020Q3

REPORT INFORMATION
  Report Type: Spontaneous
  Country: US (occurrence: US)
  Receive Date: 20200716
  Receipt Date: 20200716
  Transmission Date: 20201103
  Serious: No
  Sender: FDA-Public Use
  Company Number: US-PFIZER INC-2020270431

PATIENT
  Age: 65 Year
  Sex: Male

DRUGS (1)
  1. LORAZEPAM. [Suspect]
     Active Substance: LORAZEPAM
     Dosage: UNK; (ONLY TOOK 1 LORAZEPAM 1 TIME)

REACTIONS (1)
  - Therapeutic product effect prolonged [Unknown]
